FAERS Safety Report 24223952 (Version 1)
Quarter: 2024Q3

REPORT INFORMATION
  Report Type: Spontaneous
  Country: US (occurrence: None)
  Receive Date: 20240817
  Receipt Date: 20240817
  Transmission Date: 20241016
  Serious: Yes (Other)
  Sender: Public
  Company Number: None

PATIENT
  Age: 47 Year
  Sex: Female
  Weight: 121.5 kg

DRUGS (5)
  1. OZEMPIC [Suspect]
     Active Substance: SEMAGLUTIDE
     Indication: Weight decreased
     Dates: start: 20240815, end: 20240815
  2. OZEMPIC [Suspect]
     Active Substance: SEMAGLUTIDE
     Indication: Blood glucose increased
  3. METOPROLOL TARTRATE [Concomitant]
     Active Substance: METOPROLOL TARTRATE
  4. TRIAMTERENE [Concomitant]
     Active Substance: TRIAMTERENE
  5. glatimire acetate injection [Concomitant]

REACTIONS (6)
  - Pharyngeal swelling [None]
  - Lymphadenopathy [None]
  - Swollen tongue [None]
  - Dyspnoea [None]
  - Dysphagia [None]
  - Post procedural complication [None]

NARRATIVE: CASE EVENT DATE: 20240815
